FAERS Safety Report 5799641-9 (Version None)
Quarter: 2008Q3

REPORT INFORMATION
  Report Type: 
  Country: None (occurrence: None)
  Receive Date: 20080702
  Receipt Date: 20080702
  Transmission Date: 20090109
  Serious: Yes (Other)
  Sender: FDA-Public Use
  Company Number: None

PATIENT
  Age: 91 Year
  Sex: Female
  Weight: 62.5964 kg

DRUGS (1)
  1. DIGITEK 0.125MG AMIDE (BERTEK) [Suspect]
     Indication: CARDIAC FAILURE
     Dosage: 1 TABLET DAILY, ORALLY
     Dates: start: 20080408, end: 20080502

REACTIONS (4)
  - ABDOMINAL PAIN [None]
  - NAUSEA [None]
  - PHARMACEUTICAL PRODUCT COMPLAINT [None]
  - VOMITING [None]
